FAERS Safety Report 4897787-0 (Version None)
Quarter: 2006Q1

REPORT INFORMATION
  Report Type: 
  Country: None (occurrence: None)
  Receive Date: 20060130
  Receipt Date: 20060130
  Transmission Date: 20060701
  Serious: Yes (Life-Threatening, Hospitalization)
  Sender: FDA-Public Use
  Company Number: None

PATIENT
  Sex: Female
  Weight: 77.5 kg

DRUGS (6)
  1. PHENYTOIN [Suspect]
     Indication: CONVULSION
     Dosage: 200 TID PO INCREASE FREQUENCY
     Route: 048
     Dates: start: 20051201, end: 20051208
  2. PHENYTOIN [Suspect]
     Indication: PROPHYLAXIS
     Dosage: 200 TID PO INCREASE FREQUENCY
     Route: 048
     Dates: start: 20051201, end: 20051208
  3. DEXAMETHASONE [Suspect]
     Indication: BRAIN OEDEMA
     Dosage: 8 MG DAILY PO DECREASE DOSE AND FREQUENCY
     Route: 048
     Dates: start: 20051201, end: 20051208
  4. DEXAMETHASONE [Suspect]
     Indication: BRAIN OEDEMA
     Dosage: 8 MG DAILY PO DECREASE DOSE AND FREQUENCY
     Route: 048
     Dates: start: 20051208
  5. PHENYTOIN [Suspect]
     Dosage: 200 MG BID PO CHANGE DOSE
     Route: 048
     Dates: start: 20051101, end: 20051201
  6. DEXAMETHASONE [Suspect]
     Dosage: 10 MG TID PO CHANGE DOSE
     Route: 048
     Dates: start: 20051101, end: 20051201

REACTIONS (2)
  - DERMATITIS PSORIASIFORM [None]
  - TOXIC EPIDERMAL NECROLYSIS [None]
